FAERS Safety Report 10274708 (Version 29)
Quarter: 2022Q3

REPORT INFORMATION
  Report Type: Spontaneous
  Country: GB (occurrence: GB)
  Receive Date: 20140702
  Receipt Date: 20220710
  Transmission Date: 20221026
  Serious: Yes (Hospitalization, Congenital Anomaly, Other)
  Sender: FDA-Public Use
  Company Number: CC

PATIENT
  Age: 34 Year
  Sex: Female

DRUGS (23)
  1. KALETRA [Suspect]
     Active Substance: LOPINAVIR\RITONAVIR
     Indication: HIV infection
     Dosage: 1 TRIMESTER, 300MG
     Route: 048
     Dates: start: 20100610
  2. KALETRA [Suspect]
     Active Substance: LOPINAVIR\RITONAVIR
     Indication: Antiviral treatment
     Dosage: 1 TRIMESTER, 300MG
     Route: 048
  3. KALETRA [Suspect]
     Active Substance: LOPINAVIR\RITONAVIR
     Indication: HIV infection
  4. ISENTRESS [Suspect]
     Active Substance: RALTEGRAVIR POTASSIUM
     Indication: HIV infection
     Dosage: GESTATION PERIOD- 37 WEEKS
     Route: 048
     Dates: start: 20100610
  5. VIRAMUNE [Suspect]
     Active Substance: NEVIRAPINE
     Indication: Antiviral treatment
     Dosage: CUMULATIVE DOSE TO FIRST REACTION(NO.) 210400 MILIGRAM
     Route: 048
     Dates: start: 20090101, end: 20100610
  6. VIRAMUNE [Suspect]
     Active Substance: NEVIRAPINE
     Dosage: CUMULATIVE DOSE TO FIRST REACTION(NO.)711.0  DOSAGE FORMS
     Route: 048
     Dates: start: 20100610
  7. ZIDOVUDINE [Suspect]
     Active Substance: ZIDOVUDINE
     Indication: Antiretroviral therapy
     Route: 048
     Dates: start: 20090101, end: 20100610
  8. ZIDOVUDINE [Suspect]
     Active Substance: ZIDOVUDINE
     Dosage: CUMULATIVE DOSE TO FIRST REACTION(NO.) 326375 MILIGRAM
     Route: 048
     Dates: start: 20100610
  9. LAMIVUDINE [Suspect]
     Active Substance: LAMIVUDINE
     Indication: Antiretroviral therapy
     Route: 048
     Dates: start: 20090101, end: 20100610
  10. LAMIVUDINE [Suspect]
     Active Substance: LAMIVUDINE
     Indication: HIV infection
     Dosage: CUMULATIVE DOSE TO FIRST REACTION NO 163187.5 MILLIGRAM
     Route: 048
     Dates: start: 20100610
  11. VIREAD [Suspect]
     Active Substance: TENOFOVIR DISOPROXIL FUMARATE
     Indication: HIV infection
     Route: 048
     Dates: start: 20100610, end: 20100610
  12. VIREAD [Suspect]
     Active Substance: TENOFOVIR DISOPROXIL FUMARATE
     Indication: HIV infection
     Dosage: GESTATION PERIOD AT TIME OF EXPOSURE 1 TRIMESTER
     Route: 048
     Dates: start: 20100610
  13. VIREAD [Suspect]
     Active Substance: TENOFOVIR DISOPROXIL FUMARATE
     Indication: Antiretroviral therapy
  14. VIREAD [Suspect]
     Active Substance: TENOFOVIR DISOPROXIL FUMARATE
     Indication: Product used for unknown indication
  15. TENOFOVIR DISOPROXIL FUMARATE [Suspect]
     Active Substance: TENOFOVIR DISOPROXIL FUMARATE
     Indication: HIV infection
     Dosage: CUMULATIVE DOSE TO FIRST REACTION 326375 MG
     Route: 048
     Dates: start: 20100610
  16. TENOFOVIR DISOPROXIL FUMARATE [Suspect]
     Active Substance: TENOFOVIR DISOPROXIL FUMARATE
     Indication: Antiviral treatment
  17. RALTEGRAVIR [Suspect]
     Active Substance: RALTEGRAVIR
     Indication: HIV infection
     Dosage: CUMULATIVE DOSE TO FIRST REACTION(NO.) -711.0 DOSAGE FORMS
     Route: 048
     Dates: start: 20100110, end: 20100110
  18. RALTEGRAVIR [Suspect]
     Active Substance: RALTEGRAVIR
     Dosage: CUMULATIVE DOSE TO FIRST REACTION(NO.) -213300.0 MILLIGRAM
     Route: 048
     Dates: start: 20100610
  19. LOPINAVIR\RITONAVIR [Suspect]
     Active Substance: LOPINAVIR\RITONAVIR
     Indication: Product used for unknown indication
     Route: 048
     Dates: start: 20210610
  20. LOPINAVIR\RITONAVIR [Suspect]
     Active Substance: LOPINAVIR\RITONAVIR
     Indication: Antiviral treatment
     Dosage: UNK
     Route: 048
     Dates: start: 20100610
  21. LOPINAVIR\RITONAVIR [Suspect]
     Active Substance: LOPINAVIR\RITONAVIR
     Indication: HIV infection
  22. NEVIRAPINE [Suspect]
     Active Substance: NEVIRAPINE
     Indication: Antiretroviral therapy
     Route: 048
     Dates: start: 20090101, end: 20100610
  23. NEVIRAPINE [Suspect]
     Active Substance: NEVIRAPINE
     Indication: Antiviral treatment

REACTIONS (7)
  - Caesarean section [Unknown]
  - Aspartate aminotransferase increased [Unknown]
  - Alanine aminotransferase increased [Unknown]
  - Hepatic cytolysis [Unknown]
  - Intentional product use issue [Unknown]
  - Maternal exposure during pregnancy [Recovered/Resolved]
  - Live birth [Unknown]

NARRATIVE: CASE EVENT DATE: 20100629
